FAERS Safety Report 9674922 (Version 1)
Quarter: 2013Q4

REPORT INFORMATION
  Report Type: Spontaneous
  Country: CH (occurrence: CH)
  Receive Date: 20131107
  Receipt Date: 20131107
  Transmission Date: 20140711
  Serious: Yes (Hospitalization, Other)
  Sender: FDA-Public Use
  Company Number: CH-JNJFOC-20131018648

PATIENT
  Age: 55 Year
  Sex: Male

DRUGS (3)
  1. SIMPONI [Suspect]
     Indication: POLYARTHRITIS
     Route: 058
     Dates: start: 20130108, end: 20130608
  2. PANTOPRAZOLE [Concomitant]
     Indication: POLYARTHRITIS
     Route: 048
     Dates: start: 20130108
  3. DICLOFENAC [Concomitant]
     Indication: POLYARTHRITIS
     Route: 048
     Dates: start: 20130108

REACTIONS (6)
  - Lupus-like syndrome [Recovering/Resolving]
  - Pneumonia [Recovering/Resolving]
  - Dyspnoea [Recovering/Resolving]
  - Dizziness [Recovering/Resolving]
  - Atrial fibrillation [Recovering/Resolving]
  - Arthritis [Recovering/Resolving]
